FAERS Safety Report 4332388-4 (Version None)
Quarter: 2004Q2

REPORT INFORMATION
  Report Type: 
  Country: None (occurrence: None)
  Receive Date: 20040401
  Receipt Date: 20040322
  Transmission Date: 20050107
  Serious: Yes (Hospitalization)
  Sender: FDA-Public Use
  Company Number: GB-JNJFOC-20040305826

PATIENT
  Age: 25 Year
  Sex: Female

DRUGS (1)
  1. TOPAMAX [Suspect]

REACTIONS (1)
  - OVERDOSE [None]
